FAERS Safety Report 5286283-7 (Version None)
Quarter: 2007Q1

REPORT INFORMATION
  Report Type: 
  Country: None (occurrence: None)
  Receive Date: 20070116
  Receipt Date: 20061208
  Transmission Date: 20070707
  Serious: No
  Sender: FDA-Public Use
  Company Number: 2006SP004342

PATIENT
  Age: 70 Year
  Sex: Female
  Weight: 62.5964 kg

DRUGS (12)
  1. LUNESTA [Suspect]
     Indication: INSOMNIA
     Dosage: SEE IMAGE
     Route: 048
     Dates: start: 20061006, end: 20061006
  2. LUNESTA [Suspect]
     Indication: INSOMNIA
     Dosage: SEE IMAGE
     Route: 048
     Dates: start: 20061007, end: 20061007
  3. ALEVE [Concomitant]
  4. FELDENE [Concomitant]
  5. ANTI-ASTHMATICS [Concomitant]
  6. ALLEGRA [Concomitant]
  7. NEXIUM [Concomitant]
  8. REQUIP [Concomitant]
  9. ZETIA [Concomitant]
  10. WELLBUTRIN [Concomitant]
  11. LEXAPRO [Concomitant]
  12. TRAZODONE HCL [Concomitant]

REACTIONS (3)
  - FEELING JITTERY [None]
  - NERVOUSNESS [None]
  - PARADOXICAL DRUG REACTION [None]
